FAERS Safety Report 7582281-9 (Version None)
Quarter: 2011Q2

REPORT INFORMATION
  Report Type: 
  Country: None (occurrence: None)
  Receive Date: 20110630
  Receipt Date: 20110614
  Transmission Date: 20111010
  Serious: Yes (Hospitalization, Other)
  Sender: FDA-Public Use
  Company Number: US-BAYER-201036060NA

PATIENT
  Age: 43 Year
  Sex: Female
  Weight: 103 kg

DRUGS (7)
  1. YAZ [Suspect]
     Indication: PRODUCT USED FOR UNKNOWN INDICATION
     Dosage: UNK
     Dates: start: 20060901, end: 20070101
  2. ASCORBIC ACID [Concomitant]
  3. YASMIN [Suspect]
     Indication: PRODUCT USED FOR UNKNOWN INDICATION
     Dosage: UNK
     Dates: start: 20050901, end: 20060901
  4. ADVIL LIQUI-GELS [Concomitant]
  5. NAPROXEN (ALEVE) [Concomitant]
  6. ATIVAN [Concomitant]
  7. LEXAPRO [Concomitant]

REACTIONS (3)
  - CONVULSION [None]
  - DYSPNOEA [None]
  - PULMONARY EMBOLISM [None]
